FAERS Safety Report 5592858-8 (Version None)
Quarter: 2008Q1

REPORT INFORMATION
  Report Type: 
  Country: None (occurrence: None)
  Receive Date: 20080116
  Receipt Date: 20080108
  Transmission Date: 20080703
  Serious: Yes (Other)
  Sender: FDA-Public Use
  Company Number: PHEH2008US00642

PATIENT
  Sex: Female

DRUGS (1)
  1. METOPROLOL [Suspect]

REACTIONS (7)
  - CARDIAC DISORDER [None]
  - COLD SWEAT [None]
  - HAEMATEMESIS [None]
  - HYPERHIDROSIS [None]
  - HYPERTENSION [None]
  - LOSS OF CONSCIOUSNESS [None]
  - TREMOR [None]
